FAERS Safety Report 4331229-9 (Version None)
Quarter: 2004Q1

REPORT INFORMATION
  Report Type: 
  Country: None (occurrence: None)
  Receive Date: 20040331
  Receipt Date: 20040318
  Transmission Date: 20041129
  Serious: No
  Sender: FDA-Public Use
  Company Number: RENA-10862

PATIENT
  Age: 57 Year
  Sex: Female
  Weight: 34 kg

DRUGS (7)
  1. RENAGEL [Suspect]
     Indication: HYPERPHOSPHATAEMIA
     Dosage: 0.8 G TID PO
     Route: 048
     Dates: start: 20040110, end: 20040110
  2. ESTRADERM [Concomitant]
  3. BISOPROLOL FUMARATE [Concomitant]
  4. LOXEN [Concomitant]
  5. LOPRIL [Concomitant]
  6. MOPRAL [Concomitant]
  7. DI-ANTALVIC [Concomitant]

REACTIONS (2)
  - CONFUSIONAL STATE [None]
  - HYPOAESTHESIA [None]
